FAERS Safety Report 26123662 (Version 1)
Quarter: 2025Q4

REPORT INFORMATION
  Report Type: Spontaneous
  Country: US (occurrence: US)
  Receive Date: 20251205
  Receipt Date: 20251205
  Transmission Date: 20260117
  Serious: Yes (Death, Other)
  Sender: SANDOZ
  Company Number: US-SANDOZ-SDZ2025US091071

PATIENT
  Age: 67 Year
  Sex: Female

DRUGS (1)
  1. HYDROXYCHLOROQUINE [Suspect]
     Active Substance: HYDROXYCHLOROQUINE
     Indication: Product used for unknown indication
     Dosage: 200 MG FOR 8 YEARS,(CUMULATIVE DOSE 580 G
     Route: 065

REACTIONS (3)
  - Cardiogenic shock [Fatal]
  - Sudden death [Fatal]
  - Cardiotoxicity [Fatal]
